FAERS Safety Report 22367208 (Version 1)
Quarter: 2023Q2

REPORT INFORMATION
  Report Type: Report from Study
  Country: IT (occurrence: IT)
  Receive Date: 20230525
  Receipt Date: 20230525
  Transmission Date: 20230722
  Serious: Yes (Hospitalization, Other)
  Sender: FDA-Public Use
  Company Number: None

PATIENT
  Age: 7 Year
  Sex: Male
  Weight: 26 kg

DRUGS (4)
  1. CYTARABINE [Suspect]
     Active Substance: CYTARABINE
     Dosage: 75 MG, CYCLIC
     Route: 042
     Dates: start: 20220829, end: 20221030
  2. DAUNORUBICIN HYDROCHLORIDE [Suspect]
     Active Substance: DAUNORUBICIN HYDROCHLORIDE
     Dosage: 30 MG, CYCLIC
     Route: 042
     Dates: start: 20220715, end: 20220805
  3. VINCRISTINE SULFATE [Suspect]
     Active Substance: VINCRISTINE SULFATE
     Indication: Acute lymphocytic leukaemia
     Dosage: 1.5 MG, CYCLIC
     Route: 042
     Dates: start: 20220715, end: 20220805
  4. CYCLOPHOSPHAMIDE [Suspect]
     Active Substance: CYCLOPHOSPHAMIDE
     Dosage: 1000 MG, CYCLIC
     Route: 042
     Dates: start: 20220827, end: 20221010

REACTIONS (10)
  - Febrile neutropenia [Recovered/Resolved]
  - Haematuria [Recovered/Resolved with Sequelae]
  - Acute kidney injury [Recovered/Resolved with Sequelae]
  - Malaise [Unknown]
  - Dyspnoea [Unknown]
  - Erythema [Unknown]
  - Retching [Unknown]
  - Rhinitis [Unknown]
  - Cough [Unknown]
  - Oxygen saturation decreased [Unknown]

NARRATIVE: CASE EVENT DATE: 20220806
